FAERS Safety Report 7396289-X (Version None)
Quarter: 2011Q1

REPORT INFORMATION
  Report Type: 
  Country: None (occurrence: None)
  Receive Date: 20110301
  Receipt Date: 20100622
  Transmission Date: 20110831
  Serious: Yes (Other)
  Sender: FDA-Public Use
  Company Number: 2211100-US-JNJFOC-20100700670

PATIENT
  Sex: Male

DRUGS (2)
  1. CHILDREN'S MOTRIN [Suspect]
     Indication: PYREXIA
     Dates: start: 20090201
  2. CHILDREN'S MOTRIN [Suspect]
     Indication: EAR INFECTION
     Dates: start: 20090201

REACTIONS (2)
  - PRODUCT QUALITY ISSUE [None]
  - ERYTHEMA MULTIFORME [None]
